FAERS Safety Report 9930992 (Version 3)
Quarter: 2014Q1

REPORT INFORMATION
  Report Type: Report from Study
  Country: CA (occurrence: CA)
  Receive Date: 20140227
  Receipt Date: 20140317
  Transmission Date: 20141002
  Serious: Yes (Other)
  Sender: FDA-Public Use
  Company Number: PHHY2013CA144691

PATIENT
  Age: 64 Year
  Sex: Female

DRUGS (2)
  1. GILENYA [Suspect]
     Indication: MULTIPLE SCLEROSIS
     Dosage: 0.5 MG, QD
     Route: 048
     Dates: start: 20131202
  2. ANTIHYPERTENSIVE DRUGS [Suspect]

REACTIONS (7)
  - Orthostatic hypotension [Unknown]
  - Loss of consciousness [Unknown]
  - Fatigue [Unknown]
  - Headache [Recovered/Resolved]
  - Nasopharyngitis [Unknown]
  - Chills [Unknown]
  - Rhinorrhoea [Unknown]
